FAERS Safety Report 24922017 (Version 1)
Quarter: 2025Q1

REPORT INFORMATION
  Report Type: Spontaneous
  Country: US (occurrence: None)
  Receive Date: 20250203
  Receipt Date: 20250203
  Transmission Date: 20250409
  Serious: Yes (Life-Threatening, Hospitalization)
  Sender: FDA-CTU
  Company Number: None

PATIENT
  Age: 8 Year
  Sex: Female
  Weight: 31.6 kg

DRUGS (3)
  1. CALASPARGASE PEGOL-MKNL [Suspect]
     Active Substance: CALASPARGASE PEGOL-MKNL
     Indication: Acute lymphocytic leukaemia
     Route: 042
     Dates: start: 20240502, end: 20240502
  2. Famotldlne [Concomitant]
  3. Diphonhydramine [Concomitant]

REACTIONS (1)
  - Anaphylactic reaction [None]

NARRATIVE: CASE EVENT DATE: 20240502
